FAERS Safety Report 18764229 (Version 1)
Quarter: 2021Q1

REPORT INFORMATION
  Report Type: Spontaneous
  Country: CA (occurrence: CA)
  Receive Date: 20210120
  Receipt Date: 20210120
  Transmission Date: 20210419
  Serious: Yes (Other)
  Sender: FDA-Public Use
  Company Number: CA-STRIDES ARCOLAB LIMITED-2021SP000889

PATIENT
  Age: 39 Year
  Sex: Male

DRUGS (3)
  1. DEXAMETHASONE. [Suspect]
     Active Substance: DEXAMETHASONE
     Indication: NECK PAIN
     Dosage: 5 MILLIGRAM OF DEXAMETHASONE MIXED WITH 0.5ML OF 1% LIDOCAINE AND 0.5ML OF SODIUM CHLORIDE
     Route: 065
  2. LIDOCAINE. [Suspect]
     Active Substance: LIDOCAINE
     Indication: NECK PAIN
     Dosage: 0.5 MILLILITER OF 1% LIDOCAINE
     Route: 065
  3. SODIUM CHLORIDE. [Concomitant]
     Active Substance: SODIUM CHLORIDE
     Indication: NECK PAIN
     Dosage: 0.5 MILLILITER
     Route: 065

REACTIONS (1)
  - Myoclonus [Recovered/Resolved]
